FAERS Safety Report 5063560-6 (Version None)
Quarter: 2006Q3

REPORT INFORMATION
  Report Type: 
  Country: None (occurrence: None)
  Receive Date: 20060727
  Receipt Date: 20060718
  Transmission Date: 20061208
  Serious: Yes (Hospitalization, Other)
  Sender: FDA-Public Use
  Company Number: PL-BRISTOL-MYERS SQUIBB COMPANY-13447438

PATIENT
  Age: 52 Year
  Sex: Female

DRUGS (3)
  1. CISPLATIN [Suspect]
     Indication: NON-SMALL CELL LUNG CANCER
     Dosage: INITIAL DOSE: 13AUG05
     Route: 042
     Dates: start: 20050813, end: 20050902
  2. ERBITUX [Suspect]
     Indication: NON-SMALL CELL LUNG CANCER
     Dosage: INITIAL DOSE: 12AUG05
     Route: 042
     Dates: start: 20050812
  3. VINORELBINE [Suspect]
     Indication: NON-SMALL CELL LUNG CANCER
     Dosage: INITIAL DOSE: 13AUG05
     Route: 042
     Dates: start: 20050813, end: 20050902

REACTIONS (3)
  - ANAEMIA [None]
  - HAEMATEMESIS [None]
  - PEPTIC ULCER [None]
